FAERS Safety Report 15715033 (Version 2)
Quarter: 2019Q1

REPORT INFORMATION
  Report Type: Spontaneous
  Country: US (occurrence: US)
  Receive Date: 20181212
  Receipt Date: 20190103
  Transmission Date: 20190417
  Serious: No
  Sender: FDA-Public Use
  Company Number: US-STRONGBRIDGE BIOPHARMA-2018-STR-000406

PATIENT
  Age: 30 Year
  Sex: Female

DRUGS (1)
  1. KEVEYIS [Suspect]
     Active Substance: DICHLORPHENAMIDE
     Indication: FAMILIAL PERIODIC PARALYSIS
     Dosage: 1/4 TABLET TWICE DAILY
     Route: 048
     Dates: start: 20181122, end: 201812

REACTIONS (7)
  - Photophobia [Unknown]
  - Prescribed underdose [Not Recovered/Not Resolved]
  - Dry eye [Unknown]
  - Lip swelling [Unknown]
  - Mouth swelling [Unknown]
  - Hypoaesthesia [Recovered/Resolved]
  - Paraesthesia [Recovered/Resolved]

NARRATIVE: CASE EVENT DATE: 201811
